FAERS Safety Report 7190671-1 (Version None)
Quarter: 2010Q4

REPORT INFORMATION
  Report Type: 
  Country: None (occurrence: None)
  Receive Date: 20101223
  Receipt Date: 20101220
  Transmission Date: 20110411
  Serious: Yes (Death)
  Sender: FDA-Public Use
  Company Number: MX-PFIZER INC-2010176416

PATIENT
  Age: 86 Year
  Sex: Female
  Weight: 65 kg

DRUGS (2)
  1. CADUET [Suspect]
     Indication: CARDIAC DISORDER
     Dosage: 5MG/20MG
     Route: 048
     Dates: start: 20050101, end: 20101215
  2. ASPIRIN [Concomitant]
     Indication: CARDIAC DISORDER
     Dosage: UNK
     Route: 048
     Dates: start: 20050101, end: 20101215

REACTIONS (1)
  - DEATH [None]
